FAERS Safety Report 14270782 (Version 1)
Quarter: 2017Q4

REPORT INFORMATION
  Report Type: Spontaneous
  Country: JP (occurrence: JP)
  Receive Date: 20171211
  Receipt Date: 20171211
  Transmission Date: 20180321
  Serious: Yes (Death)
  Sender: FDA-Public Use
  Company Number: JP-OTSUKA-BJ20095659

PATIENT
  Age: 38 Year
  Sex: Male
  Weight: 59 kg

DRUGS (6)
  1. ABILIFY [Suspect]
     Active Substance: ARIPIPRAZOLE
     Dosage: 30 MG, QD
     Route: 048
     Dates: start: 20091202, end: 20091210
  2. SEROQUEL [Suspect]
     Active Substance: QUETIAPINE FUMARATE
     Indication: SCHIZOPHRENIA
     Dosage: 25 MG, BID
     Route: 048
     Dates: start: 20090818, end: 20090902
  3. ABILIFY [Suspect]
     Active Substance: ARIPIPRAZOLE
     Indication: SCHIZOPHRENIA
     Dosage: 6 MG, TID
     Route: 048
     Dates: start: 20091127, end: 20091201
  4. SEROQUEL [Suspect]
     Active Substance: QUETIAPINE FUMARATE
     Dosage: 100 MG, QD
     Route: 048
     Dates: start: 20090903, end: 20090916
  5. QUETIAPINE. [Suspect]
     Active Substance: QUETIAPINE
     Indication: SCHIZOPHRENIA
     Dosage: STRENGTH-25MG  18AUG-2SEP09:25MG BID (16DAYS),3-16SEP09:100 MG/D(14D),17SEP-10DEC09:50MG TID (85D)
     Route: 048
     Dates: start: 20090818, end: 20091210
  6. SEROQUEL [Suspect]
     Active Substance: QUETIAPINE FUMARATE
     Dosage: 50 MG, TID
     Route: 048
     Dates: start: 20090917, end: 20091210

REACTIONS (2)
  - Seizure [Fatal]
  - Asphyxia [Fatal]

NARRATIVE: CASE EVENT DATE: 20091210
